FAERS Safety Report 22705872 (Version 8)
Quarter: 2025Q3

REPORT INFORMATION
  Report Type: Report from Study
  Country: EU (occurrence: EU)
  Receive Date: 20230714
  Receipt Date: 20250916
  Transmission Date: 20251021
  Serious: Yes (Hospitalization, Other)
  Sender: BLUEPRINT MEDICINES
  Company Number: EU-Blueprint Medicines Corporation-SO-BE-2023-001082

PATIENT
  Age: 59 Year
  Sex: Male

DRUGS (13)
  1. AVAPRITINIB [Suspect]
     Active Substance: AVAPRITINIB
     Indication: Smouldering systemic mastocytosis
     Route: 048
     Dates: start: 20211005, end: 20230706
  2. AVAPRITINIB [Suspect]
     Active Substance: AVAPRITINIB
     Route: 048
     Dates: start: 20230716
  3. AVAPRITINIB [Suspect]
     Active Substance: AVAPRITINIB
     Route: 048
     Dates: start: 20211005, end: 20211130
  4. AVAPRITINIB [Suspect]
     Active Substance: AVAPRITINIB
     Route: 048
     Dates: start: 20211208, end: 20230706
  5. AVAPRITINIB [Suspect]
     Active Substance: AVAPRITINIB
     Route: 048
     Dates: start: 20241208
  6. BOTOX [Suspect]
     Active Substance: ONABOTULINUMTOXINA
     Indication: Headache
     Route: 065
  7. BILASTINE [Concomitant]
     Active Substance: BILASTINE
     Indication: Smouldering systemic mastocytosis
     Route: 048
     Dates: end: 20250211
  8. TAMSULOSIN HYDROCHLORIDE [Concomitant]
     Active Substance: TAMSULOSIN HYDROCHLORIDE
     Indication: Benign prostatic hyperplasia
     Route: 048
  9. VITAMIN D3 [Concomitant]
     Active Substance: CHOLECALCIFEROL
     Indication: Vitamin supplementation
     Dosage: 800IU (20UG)
     Route: 048
     Dates: start: 202405
  10. NICOTINE TRANSDERMAL SYSTEM [Concomitant]
     Active Substance: NICOTINE
     Indication: Ex-tobacco user
     Route: 061
     Dates: start: 202312
  11. LOPERAMIDE [Concomitant]
     Active Substance: LOPERAMIDE
     Indication: Smouldering systemic mastocytosis
     Route: 065
     Dates: start: 20240605
  12. SOLIFENACIN [Concomitant]
     Active Substance: SOLIFENACIN
     Indication: Benign prostatic hyperplasia
     Route: 048
  13. RUPATADINE [Concomitant]
     Active Substance: RUPATADINE
     Indication: Smouldering systemic mastocytosis
     Route: 048
     Dates: start: 20250212

REACTIONS (10)
  - Colitis [Recovered/Resolved]
  - Cholecystitis [Recovered/Resolved]
  - Pruritus [Unknown]
  - Fatigue [Unknown]
  - Insomnia [Unknown]
  - Headache [Unknown]
  - Dental caries [Unknown]
  - Lacrimation increased [Unknown]
  - Obstructive sleep apnoea syndrome [Unknown]
  - Off label use [Unknown]

NARRATIVE: CASE EVENT DATE: 20211005
